FAERS Safety Report 4632306-5 (Version None)
Quarter: 2005Q2

REPORT INFORMATION
  Report Type: 
  Country: None (occurrence: None)
  Receive Date: 20050411
  Receipt Date: 20050401
  Transmission Date: 20051028
  Serious: Yes (Hospitalization)
  Sender: FDA-Public Use
  Company Number: GB-MERCK-0504GBR00012

PATIENT
  Age: 54 Year
  Sex: Male

DRUGS (5)
  1. ZOCOR [Suspect]
     Route: 048
  2. PROPRANOLOL HYDROCHLORIDE [Concomitant]
     Indication: HYPERTENSION
     Route: 065
  3. FUROSEMIDE [Concomitant]
     Route: 065
  4. RAMIPRIL [Concomitant]
     Route: 065
  5. ASPIRIN [Concomitant]
     Route: 065

REACTIONS (5)
  - BLOOD CREATINE PHOSPHOKINASE INCREASED [None]
  - BLOOD PRESSURE INCREASED [None]
  - MYOGLOBIN URINE PRESENT [None]
  - RENAL IMPAIRMENT [None]
  - RHABDOMYOLYSIS [None]
